FAERS Safety Report 7733306-9 (Version None)
Quarter: 2011Q3

REPORT INFORMATION
  Report Type: 
  Country: None (occurrence: None)
  Receive Date: 20110907
  Receipt Date: 20110826
  Transmission Date: 20111222
  Serious: Yes (Hospitalization)
  Sender: FDA-Public Use
  Company Number: US-BAYER-2010-008831

PATIENT
  Age: 18 Year
  Sex: Female
  Weight: 86 kg

DRUGS (9)
  1. BETAMETHASONE DIPROPIONATE [Concomitant]
     Indication: ECZEMA
     Dosage: UNK
     Route: 061
     Dates: start: 20070101, end: 20090101
  2. SINGULAIR [Concomitant]
     Indication: ASTHMA
     Dosage: UNK UNK, PRN
  3. FLONASE [Concomitant]
     Indication: MULTIPLE ALLERGIES
     Dosage: UNK UNK, PRN
  4. ADVAIR DISKUS 100/50 [Concomitant]
     Indication: ASTHMA
     Dosage: UNK UNK, PRN
  5. ALLEGRA [Concomitant]
     Indication: MULTIPLE ALLERGIES
     Dosage: UNK UNK, PRN
  6. EUCERIN [Concomitant]
     Indication: ECZEMA
     Dosage: UNK
     Route: 061
     Dates: start: 20030101
  7. ZYRTEC [Concomitant]
     Indication: MULTIPLE ALLERGIES
     Dosage: UNK UNK, PRN
  8. RANITIDINE [Concomitant]
     Dosage: 300 MG, UNK
     Dates: start: 20080906, end: 20090402
  9. YASMIN [Suspect]
     Dosage: UNK
     Dates: start: 20050105, end: 20090101

REACTIONS (4)
  - INJURY [None]
  - CHOLELITHIASIS [None]
  - CHOLECYSTITIS CHRONIC [None]
  - PAIN [None]
